FAERS Safety Report 4631262-3 (Version None)
Quarter: 2005Q2

REPORT INFORMATION
  Report Type: 
  Country: None (occurrence: None)
  Receive Date: 20050406
  Receipt Date: 20050330
  Transmission Date: 20051028
  Serious: Yes (Life-Threatening, Hospitalization)
  Sender: FDA-Public Use
  Company Number: 2005UW05005

PATIENT
  Age: 69 Year
  Sex: Male
  Weight: 67.5 kg

DRUGS (3)
  1. ZOLADEX [Suspect]
     Dosage: 3.6 MG MONTH SQ
     Route: 058
     Dates: start: 19950601
  2. FLUTAMIDE [Suspect]
     Dosage: 250 MG TID PO
     Route: 048
     Dates: start: 19950406, end: 19950619
  3. BAZLO-FORTZ [Concomitant]

REACTIONS (1)
  - DEEP VEIN THROMBOSIS [None]
